FAERS Safety Report 5270799-3 (Version None)
Quarter: 2007Q1

REPORT INFORMATION
  Report Type: 
  Country: None (occurrence: None)
  Receive Date: 20070319
  Receipt Date: 20070319
  Transmission Date: 20070707
  Serious: No
  Sender: FDA-Public Use
  Company Number: None

PATIENT
  Age: 51 Year
  Sex: Male
  Weight: 92.9874 kg

DRUGS (2)
  1. ZICAM NO-DRIP LIQUID NASAL GEL ZICAM COLD REMEDY [Suspect]
     Indication: NASOPHARYNGITIS
     Dates: start: 20070226, end: 20070304
  2. ZICAM RAPID MELTS         ZICAM COLD REMEDY [Suspect]
     Indication: NASOPHARYNGITIS
     Dates: start: 20060226, end: 20070304

REACTIONS (2)
  - ANOSMIA [None]
  - DYSGEUSIA [None]
